FAERS Safety Report 20969407 (Version 4)
Quarter: 2022Q3

REPORT INFORMATION
  Report Type: Spontaneous
  Country: CA (occurrence: CA)
  Receive Date: 20220616
  Receipt Date: 20220915
  Transmission Date: 20221027
  Serious: Yes (Other)
  Sender: FDA-Public Use
  Company Number: CA-PFIZER INC-202101275342

PATIENT
  Age: 64 Year
  Sex: Female

DRUGS (5)
  1. XELJANZ [Interacting]
     Active Substance: TOFACITINIB CITRATE
     Indication: Rheumatoid arthritis
     Dosage: 5 MG, 2X/DAY
     Route: 048
     Dates: start: 20180320, end: 20220912
  2. OZEMPIC [Interacting]
     Active Substance: SEMAGLUTIDE
     Indication: Type 2 diabetes mellitus
     Dosage: 1 DF DOSAGE NOT AVAILABLE
     Route: 065
     Dates: start: 202207
  3. OZEMPIC [Interacting]
     Active Substance: SEMAGLUTIDE
     Indication: Weight decreased
  4. ARAVA [Concomitant]
     Active Substance: LEFLUNOMIDE
     Dosage: UNK
  5. PREDNISONE [Concomitant]
     Active Substance: PREDNISONE
     Dosage: 15 MG
     Route: 065

REACTIONS (10)
  - Colitis ischaemic [Not Recovered/Not Resolved]
  - Type 2 diabetes mellitus [Unknown]
  - Drug ineffective [Unknown]
  - Urinary tract infection bacterial [Recovering/Resolving]
  - Blood urine present [Recovering/Resolving]
  - Discomfort [Recovering/Resolving]
  - Pain [Unknown]
  - Weight increased [Unknown]
  - Drug interaction [Unknown]
  - Back pain [Recovering/Resolving]

NARRATIVE: CASE EVENT DATE: 20210901
